FAERS Safety Report 7430585-2 (Version None)
Quarter: 2011Q2

REPORT INFORMATION
  Report Type: 
  Country: None (occurrence: None)
  Receive Date: 20110421
  Receipt Date: 20100727
  Transmission Date: 20111010
  Serious: No
  Sender: FDA-Public Use
  Company Number: US-ASTRAZENECA-2010SE35168

PATIENT
  Age: 51 Year
  Sex: Male
  Weight: 99.8 kg

DRUGS (5)
  1. TOPROL-XL [Suspect]
     Route: 048
  2. CRESTOR [Suspect]
     Route: 048
     Dates: start: 20100701
  3. ASPIRIN [Concomitant]
  4. VITAMINS [Concomitant]
  5. LISINOPRIL [Concomitant]

REACTIONS (3)
  - SOMNOLENCE [None]
  - YAWNING [None]
  - ABNORMAL DREAMS [None]
